FAERS Safety Report 12934273 (Version 3)
Quarter: 2017Q1

REPORT INFORMATION
  Report Type: Spontaneous
  Country: PT (occurrence: FR)
  Receive Date: 20161111
  Receipt Date: 20170120
  Transmission Date: 20170428
  Serious: Yes (Hospitalization)
  Sender: FDA-Public Use
  Company Number: PT-SUNOVION-2016SUN002832

PATIENT

DRUGS (1)
  1. ZEBINIX [Suspect]
     Active Substance: ESLICARBAZEPINE ACETATE
     Indication: EPILEPSY
     Dosage: 400 MG IN THE EVENING
     Route: 048
     Dates: start: 20161004

REACTIONS (2)
  - Hypercalcaemia [Unknown]
  - Parathyroid tumour benign [Unknown]

NARRATIVE: CASE EVENT DATE: 20160926
